FAERS Safety Report 6285526-0 (Version None)
Quarter: 2009Q3

REPORT INFORMATION
  Report Type: 
  Country: None (occurrence: None)
  Receive Date: 20090727
  Receipt Date: 20090716
  Transmission Date: 20100115
  Serious: Yes (Other)
  Sender: FDA-Public Use
  Company Number: PHHY2009IE23360

PATIENT
  Sex: Male

DRUGS (1)
  1. NEORAL [Suspect]
     Indication: NEPHROTIC SYNDROME
     Dosage: 150 MG MANE, 125 MG NOCTE
     Route: 048

REACTIONS (2)
  - GASTRIC HAEMORRHAGE [None]
  - ORAL ADMINISTRATION COMPLICATION [None]
